FAERS Safety Report 17665472 (Version 3)
Quarter: 2020Q2

REPORT INFORMATION
  Report Type: Spontaneous
  Country: US (occurrence: US)
  Receive Date: 20200414
  Receipt Date: 20200528
  Transmission Date: 20200713
  Serious: No
  Sender: FDA-Public Use
  Company Number: US-VERTEX PHARMACEUTICALS-2020-000538

PATIENT
  Sex: Female
  Weight: 54 kg

DRUGS (1)
  1. SYMDEKO [Suspect]
     Active Substance: IVACAFTOR\TEZACAFTOR
     Indication: CYSTIC FIBROSIS
     Dosage: TEZACAFTOR 100MG/ IVACAFTOR 150MG; IVACAFTOR 150MG; UNKNOWN FREQUENCY
     Route: 048
     Dates: start: 20180829

REACTIONS (3)
  - Weight decreased [Unknown]
  - Drug ineffective [Unknown]
  - General physical health deterioration [Not Recovered/Not Resolved]
